FAERS Safety Report 6436709-8 (Version None)
Quarter: 2009Q4

REPORT INFORMATION
  Report Type: 
  Country: None (occurrence: None)
  Receive Date: 20091110
  Receipt Date: 20091110
  Transmission Date: 20100525
  Serious: No
  Sender: FDA-Public Use
  Company Number: None

PATIENT
  Sex: Female
  Weight: 94.3482 kg

DRUGS (2)
  1. YAZ [Suspect]
     Indication: CONTRACEPTION
     Dates: start: 20071101, end: 20080501
  2. YAZ [Suspect]
     Indication: PREMENSTRUAL SYNDROME
     Dates: start: 20071101, end: 20080501

REACTIONS (4)
  - BLOOD PRESSURE INCREASED [None]
  - GALLBLADDER OPERATION [None]
  - MALAISE [None]
  - WEIGHT INCREASED [None]
